FAERS Safety Report 21979170 (Version 1)
Quarter: 2023Q1

REPORT INFORMATION
  Report Type: Spontaneous
  Country: US (occurrence: US)
  Receive Date: 20230210
  Receipt Date: 20230210
  Transmission Date: 20230418
  Serious: No
  Sender: FDA-Public Use
  Company Number: US-002147023-NVSC2023US027174

PATIENT
  Sex: Female

DRUGS (1)
  1. COSYNTROPIN [Suspect]
     Active Substance: COSYNTROPIN
     Indication: Product used for unknown indication
     Dosage: 0.25 MG (0.25MG/VL 1X1ML VL)
     Route: 065

REACTIONS (1)
  - Occupational exposure to product [Unknown]
